FAERS Safety Report 23965933 (Version 2)
Quarter: 2024Q3

REPORT INFORMATION
  Report Type: Report from Study
  Country: CA (occurrence: CA)
  Receive Date: 20240612
  Receipt Date: 20240724
  Transmission Date: 20241017
  Serious: Yes (Other)
  Sender: AMGEN
  Company Number: CA-AMGEN-CANSL2024113806

PATIENT
  Age: 68 Year
  Sex: Male
  Weight: 127.4 kg

DRUGS (3)
  1. MVASI [Suspect]
     Active Substance: BEVACIZUMAB-AWWB
     Indication: Product used for unknown indication
     Dosage: 600 MILLIGRAM
     Route: 065
  2. MVASI [Suspect]
     Active Substance: BEVACIZUMAB-AWWB
     Dosage: 600 MILLIGRAM
     Route: 065
  3. MVASI [Suspect]
     Active Substance: BEVACIZUMAB-AWWB
     Dosage: 600 MILLIGRAM
     Route: 065

REACTIONS (1)
  - Partial seizures [Not Recovered/Not Resolved]

NARRATIVE: CASE EVENT DATE: 20240518
